FAERS Safety Report 18684013 (Version 1)
Quarter: 2020Q4

REPORT INFORMATION
  Report Type: Report from Study
  Country: PA (occurrence: PA)
  Receive Date: 20201230
  Receipt Date: 20201230
  Transmission Date: 20210114
  Serious: Yes (Other)
  Sender: FDA-Public Use
  Company Number: NVSC2020PA342816

PATIENT
  Sex: Female

DRUGS (1)
  1. GILENYA [Suspect]
     Active Substance: FINGOLIMOD HYDROCHLORIDE
     Indication: MULTIPLE SCLEROSIS
     Dosage: 0.5 MG, QD
     Route: 048
     Dates: start: 20201117

REACTIONS (5)
  - Balance disorder [Unknown]
  - Paraesthesia [Unknown]
  - Multiple sclerosis relapse [Recovering/Resolving]
  - Limb discomfort [Unknown]
  - Discomfort [Unknown]
